FAERS Safety Report 6317735-6 (Version None)
Quarter: 2009Q3

REPORT INFORMATION
  Report Type: 
  Country: None (occurrence: None)
  Receive Date: 20090821
  Receipt Date: 20090814
  Transmission Date: 20100115
  Serious: Yes (Other)
  Sender: FDA-Public Use
  Company Number: PHHY2009KR34181

PATIENT
  Sex: Female

DRUGS (1)
  1. SANDOSTATIN LAR [Suspect]
     Indication: ACROMEGALY
     Dosage: UNK
     Route: 030
     Dates: start: 20040101

REACTIONS (5)
  - HEADACHE [None]
  - INJECTION SITE REACTION [None]
  - NASOPHARYNGITIS [None]
  - PAIN [None]
  - PYELONEPHRITIS ACUTE [None]
